FAERS Safety Report 6645816-6 (Version None)
Quarter: 2010Q1

REPORT INFORMATION
  Report Type: 
  Country: None (occurrence: None)
  Receive Date: 20100318
  Receipt Date: 20100318
  Transmission Date: 20100710
  Serious: No
  Sender: FDA-Public Use
  Company Number: None

PATIENT
  Age: 41 Year
  Sex: Female
  Weight: 54.4316 kg

DRUGS (4)
  1. AZITHROMYCIN [Suspect]
     Indication: BACTERIAL INFECTION
     Dosage: 2 TABLETS 1ST DAY, 1 TAB AFTER  ONCE DAILY PO
     Route: 048
     Dates: start: 20100309, end: 20100311
  2. AZITHROMYCIN [Suspect]
     Indication: COUGH
     Dosage: 2 TABLETS 1ST DAY, 1 TAB AFTER  ONCE DAILY PO
     Route: 048
     Dates: start: 20100309, end: 20100311
  3. AZITHROMYCIN [Suspect]
     Indication: NASOPHARYNGITIS
     Dosage: 2 TABLETS 1ST DAY, 1 TAB AFTER  ONCE DAILY PO
     Route: 048
     Dates: start: 20100309, end: 20100311
  4. AZITHROMYCIN [Suspect]
     Indication: OROPHARYNGEAL PAIN
     Dosage: 2 TABLETS 1ST DAY, 1 TAB AFTER  ONCE DAILY PO
     Route: 048
     Dates: start: 20100309, end: 20100311

REACTIONS (2)
  - DIARRHOEA [None]
  - DRUG HYPERSENSITIVITY [None]
